FAERS Safety Report 9406734 (Version 1)
Quarter: 2013Q3

REPORT INFORMATION
  Report Type: Spontaneous
  Country: US (occurrence: US)
  Receive Date: 20130718
  Receipt Date: 20130718
  Transmission Date: 20140515
  Serious: No
  Sender: FDA-Public Use
  Company Number: US-BIOGENIDEC-2013BI064792

PATIENT
  Age: 43 Year
  Sex: Female

DRUGS (6)
  1. AVONEX [Suspect]
     Indication: MULTIPLE SCLEROSIS
     Route: 030
     Dates: start: 20120229
  2. CIPRO [Concomitant]
  3. TYLENOL [Concomitant]
  4. ALEVE [Concomitant]
  5. OXYBUTYNIN CHLORIDE [Concomitant]
  6. BENADRYL ALLERGY [Concomitant]

REACTIONS (1)
  - Cellulitis [Unknown]
